FAERS Safety Report 6467624-1 (Version None)
Quarter: 2009Q4

REPORT INFORMATION
  Report Type: 
  Country: None (occurrence: None)
  Receive Date: 20091202
  Receipt Date: 20091118
  Transmission Date: 20100525
  Serious: Yes (Hospitalization, Other)
  Sender: FDA-Public Use
  Company Number: PHHY2009JP50682

PATIENT
  Age: 4 Year
  Sex: Male

DRUGS (9)
  1. CYCLOSPORINE [Suspect]
     Indication: BONE MARROW TRANSPLANT
  2. CYCLOSPORINE [Suspect]
     Indication: GRAFT VERSUS HOST DISEASE
  3. IRRADIATION [Concomitant]
     Dosage: 12 GY
  4. ETOPOSIDE [Concomitant]
     Dosage: 60 MG/KG, UNK
  5. CYCLOPHOSPHAMIDE [Concomitant]
     Dosage: 60 MG/KG (92)
  6. METHOTREXATE [Concomitant]
     Indication: GRAFT VERSUS HOST DISEASE
  7. PREDNISOLONE [Concomitant]
     Dosage: 1 MG/KG/DAY
  8. PREDNISOLONE [Concomitant]
     Dosage: 2 MG/KG/DAY
  9. TACROLIMUS [Concomitant]

REACTIONS (15)
  - ACUTE GRAFT VERSUS HOST DISEASE [None]
  - ASTHMA [None]
  - CHRONIC GRAFT VERSUS HOST DISEASE [None]
  - DYSPNOEA [None]
  - EMPHYSEMA [None]
  - ENCEPHALOPATHY [None]
  - HYPERCAPNIA [None]
  - LIVER DISORDER [None]
  - MECHANICAL VENTILATION [None]
  - PNEUMOMEDIASTINUM [None]
  - PNEUMOTHORAX [None]
  - RESPIRATORY DISTRESS [None]
  - RESPIRATORY FAILURE [None]
  - SKIN DISORDER [None]
  - WHEEZING [None]
